FAERS Safety Report 16292127 (Version 3)
Quarter: 2022Q2

REPORT INFORMATION
  Report Type: Spontaneous
  Country: US (occurrence: None)
  Receive Date: 20190509
  Receipt Date: 20220420
  Transmission Date: 20220720
  Serious: Yes (Other)
  Sender: FDA-Public Use
  Company Number: 2019SE62715

PATIENT
  Sex: Male
  Weight: 89.8 kg

DRUGS (34)
  1. PRILOSEC [Suspect]
     Active Substance: OMEPRAZOLE MAGNESIUM
     Indication: Gastrooesophageal reflux disease
     Route: 048
  2. PRILOSEC [Suspect]
     Active Substance: OMEPRAZOLE MAGNESIUM
     Indication: Gastrooesophageal reflux disease
     Dosage: GENERIC
     Route: 065
     Dates: start: 2010
  3. PREVACID [Suspect]
     Active Substance: LANSOPRAZOLE
     Indication: Gastrooesophageal reflux disease
     Route: 065
     Dates: start: 2006, end: 2010
  4. PREVACID [Suspect]
     Active Substance: LANSOPRAZOLE
     Indication: Gastrooesophageal reflux disease
     Route: 065
     Dates: start: 2007, end: 2010
  5. PANTOPRAZOLE [Suspect]
     Active Substance: PANTOPRAZOLE
     Dosage: GENERIC
     Route: 065
  6. VITAMIN B12 NOS/(6S)-5-METHYLTETRAHYDROFOLATE/RIBOFLAVIN/BETAINE/PYRID [Concomitant]
     Indication: Renal disorder
     Dosage: WITHIN THE PAST 5 YEARS
  7. VITAMIN D [Concomitant]
     Active Substance: VITAMIN D NOS
     Indication: Renal disorder
     Dosage: WITHIN THE PAST 5 YEARS
  8. ROLAIDS [Concomitant]
     Active Substance: CALCIUM CARBONATE\MAGNESIUM HYDROXIDE
  9. PEPTO-BISMOL [Concomitant]
     Active Substance: BISMUTH SUBSALICYLATE
  10. METOPROLOL [Concomitant]
     Active Substance: METOPROLOL
  11. TAMSULOSIN [Concomitant]
     Active Substance: TAMSULOSIN
  12. ERTUGLIFLOZIN PIDOLATE/SITAGLIPTIN PHOSPHATE MONOHYDRATE [Concomitant]
  13. GLIMEPIRIDE [Concomitant]
     Active Substance: GLIMEPIRIDE
  14. FENOFIBRATE [Concomitant]
     Active Substance: FENOFIBRATE
  15. TOPIRAMATE [Concomitant]
     Active Substance: TOPIRAMATE
  16. NORTRIPTYLINE [Concomitant]
     Active Substance: NORTRIPTYLINE
  17. LOSARTAN [Concomitant]
     Active Substance: LOSARTAN
  18. CYANOCOBALAMIN [Concomitant]
     Active Substance: CYANOCOBALAMIN
  19. ASPIRIN [Concomitant]
     Active Substance: ASPIRIN
  20. EPHEDRA SPP./ZINGIBER OFFICINALE RHIZOME/PAULLINIA CUPANA/SALIX ALBA B [Concomitant]
  21. NITROGLYCERIN [Concomitant]
     Active Substance: NITROGLYCERIN
  22. TOPAMAX [Concomitant]
     Active Substance: TOPIRAMATE
  23. NORTRIPTYLINE [Concomitant]
     Active Substance: NORTRIPTYLINE
  24. IMITREX [Concomitant]
     Active Substance: SUMATRIPTAN SUCCINATE
  25. CELEXA [Concomitant]
     Active Substance: CITALOPRAM HYDROBROMIDE
  26. ZETIA [Concomitant]
     Active Substance: EZETIMIBE
  27. FLEXERIL [Concomitant]
     Active Substance: CYCLOBENZAPRINE HYDROCHLORIDE
  28. LORTAB [Concomitant]
     Active Substance: ACETAMINOPHEN\HYDROCODONE BITARTRATE
  29. FLOMAX [Concomitant]
     Active Substance: TAMSULOSIN HYDROCHLORIDE
  30. SODIUM BICARBONATE [Concomitant]
     Active Substance: SODIUM BICARBONATE
  31. JANUVIA [Concomitant]
     Active Substance: SITAGLIPTIN PHOSPHATE
  32. COZAAR [Concomitant]
     Active Substance: LOSARTAN POTASSIUM
  33. PRAVACHOL [Concomitant]
     Active Substance: PRAVASTATIN SODIUM
  34. NITROSTAT [Concomitant]
     Active Substance: NITROGLYCERIN

REACTIONS (3)
  - Chronic kidney disease [Not Recovered/Not Resolved]
  - Renal failure [Unknown]
  - Gastrooesophageal reflux disease [Not Recovered/Not Resolved]
